FAERS Safety Report 9752939 (Version 1)
Quarter: 2013Q4

REPORT INFORMATION
  Report Type: Spontaneous
  Country: IT (occurrence: IT)
  Receive Date: 20131213
  Receipt Date: 20131213
  Transmission Date: 20140711
  Serious: Yes (Hospitalization, Other)
  Sender: FDA-Public Use
  Company Number: IT-JNJFOC-20131201384

PATIENT
  Age: 35 Year
  Sex: Male

DRUGS (10)
  1. DARUNAVIR [Suspect]
     Indication: HIV INFECTION
     Route: 065
  2. DARUNAVIR [Suspect]
     Indication: HIV INFECTION
     Route: 065
     Dates: start: 201203
  3. EMTRICITABINE/TENOFOVIR DISOPROXIL FUMARATE [Suspect]
     Indication: HIV INFECTION
     Route: 065
     Dates: start: 201203
  4. EMTRICITABINE/TENOFOVIR DISOPROXIL FUMARATE [Suspect]
     Indication: HIV INFECTION
     Route: 065
  5. RITONAVIR [Suspect]
     Indication: HIV INFECTION
     Route: 065
  6. RITONAVIR [Suspect]
     Indication: HIV INFECTION
     Route: 065
     Dates: start: 201203
  7. CISPLATIN [Suspect]
     Indication: SEMINOMA
     Route: 065
  8. ETOPOSIDE [Suspect]
     Indication: SEMINOMA
     Route: 065
  9. BLEOMYCIN [Suspect]
     Indication: SEMINOMA
     Route: 065
  10. UNSPECIFIED LOW-MOLECULAR WEIGHT HEPARIN [Suspect]
     Indication: THROMBOSIS PROPHYLAXIS
     Route: 065

REACTIONS (4)
  - Acute generalised exanthematous pustulosis [Recovering/Resolving]
  - Febrile neutropenia [Unknown]
  - Herpes simplex [Unknown]
  - Immune reconstitution inflammatory syndrome [Unknown]
